FAERS Safety Report 7816975-4 (Version None)
Quarter: 2011Q4

REPORT INFORMATION
  Report Type: 
  Country: None (occurrence: None)
  Receive Date: 20111017
  Receipt Date: 20111013
  Transmission Date: 20120403
  Serious: Yes (Hospitalization)
  Sender: FDA-Public Use
  Company Number: CH-BRISTOL-MYERS SQUIBB COMPANY-16158412

PATIENT
  Age: 40 Year
  Sex: Male

DRUGS (7)
  1. ASPIRIN [Concomitant]
     Route: 048
  2. SERTRALINE HYDROCHLORIDE [Concomitant]
     Route: 048
  3. ABILIFY [Suspect]
     Route: 048
     Dates: start: 20110804, end: 20110825
  4. ATENOLOL [Concomitant]
     Route: 048
  5. PRAVALOTIN [Concomitant]
     Route: 048
  6. PLAVIX [Concomitant]
     Route: 048
  7. VALSARTAN  AND HYDROCHLOROTHIAZIDE [Concomitant]
     Route: 048

REACTIONS (2)
  - PNEUMONITIS [None]
  - GENERAL PHYSICAL HEALTH DETERIORATION [None]
